FAERS Safety Report 25621396 (Version 1)
Quarter: 2025Q3

REPORT INFORMATION
  Report Type: Spontaneous
  Country: JP (occurrence: JP)
  Receive Date: 20250730
  Receipt Date: 20250730
  Transmission Date: 20251020
  Serious: Yes (Other)
  Sender: Haleon PLC
  Company Number: JP-HALEON-2254660

PATIENT
  Sex: Male

DRUGS (1)
  1. ALLI [Suspect]
     Active Substance: ORLISTAT
     Indication: Product used for unknown indication
     Route: 048

REACTIONS (3)
  - Diabetes mellitus [Not Recovered/Not Resolved]
  - Recalled product administered [Unknown]
  - Low density lipoprotein increased [Not Recovered/Not Resolved]
